FAERS Safety Report 7867293-X (Version None)
Quarter: 2011Q4

REPORT INFORMATION
  Report Type: 
  Country: None (occurrence: None)
  Receive Date: 20111028
  Receipt Date: 20111025
  Transmission Date: 20120403
  Serious: Yes (Other)
  Sender: FDA-Public Use
  Company Number: US-ROCHE-1003773

PATIENT
  Sex: Female

DRUGS (2)
  1. BONIVA [Suspect]
     Indication: PRODUCT USED FOR UNKNOWN INDICATION
     Route: 048
  2. ALENDRONATE SODIUM [Concomitant]
     Dates: end: 20090101

REACTIONS (6)
  - DEVICE FAILURE [None]
  - OSTEONECROSIS OF JAW [None]
  - TOOTH EXTRACTION [None]
  - GINGIVAL DISORDER [None]
  - BACK PAIN [None]
  - BONE LOSS [None]
